FAERS Safety Report 6144187-1 (Version None)
Quarter: 2009Q2

REPORT INFORMATION
  Report Type: 
  Country: None (occurrence: None)
  Receive Date: 20090401
  Receipt Date: 20090319
  Transmission Date: 20091009
  Serious: Yes (Hospitalization, Other)
  Sender: FDA-Public Use
  Company Number: ADE2009-0503

PATIENT
  Age: 57 Year
  Sex: Male

DRUGS (2)
  1. ATENOLOL [Suspect]
     Dosage: 280MG - X 1 - ORAL
     Route: 048
  2. VERAPAMIL [Suspect]
     Dosage: 1600MG - X 1 - ORAL
     Route: 048

REACTIONS (9)
  - ATRIOVENTRICULAR BLOCK FIRST DEGREE [None]
  - CARDIAC FAILURE [None]
  - COLD SWEAT [None]
  - HYPOTENSION [None]
  - HYPOVENTILATION [None]
  - INTENTIONAL OVERDOSE [None]
  - PULMONARY OEDEMA [None]
  - PULSE ABSENT [None]
  - SINUS BRADYCARDIA [None]
